FAERS Safety Report 9122029 (Version 1)
Quarter: 2013Q1

REPORT INFORMATION
  Report Type: Spontaneous
  Country: ES (occurrence: ES)
  Receive Date: 20130114
  Receipt Date: 20130114
  Transmission Date: 20140127
  Serious: Yes (Other)
  Sender: FDA-Public Use
  Company Number: ES-ASTRAZENECA-2013SE00274

PATIENT
  Age: 55 Year
  Sex: Male

DRUGS (1)
  1. VIMOVO [Suspect]
     Route: 048
     Dates: start: 20121129, end: 20121129

REACTIONS (2)
  - Psychomotor hyperactivity [Recovered/Resolved]
  - Burning sensation [Recovered/Resolved]
